FAERS Safety Report 22113443 (Version 1)
Quarter: 2023Q1

REPORT INFORMATION
  Report Type: Spontaneous
  Country: JP (occurrence: JP)
  Receive Date: 20230320
  Receipt Date: 20230320
  Transmission Date: 20230418
  Serious: Yes (Other)
  Sender: FDA-Public Use
  Company Number: JP-JNJFOC-20230344002

PATIENT
  Age: 62 Year
  Sex: Male

DRUGS (3)
  1. OPSUMIT [Suspect]
     Active Substance: MACITENTAN
     Indication: Product used for unknown indication
     Dosage: DOSE UNKNOWN
     Route: 048
  2. UPTRAVI [Concomitant]
     Active Substance: SELEXIPAG
     Route: 048
  3. ADCIRCA [Concomitant]
     Active Substance: TADALAFIL
     Route: 048

REACTIONS (1)
  - Neoplasm malignant [Unknown]
